FAERS Safety Report 9259044 (Version 1)
Quarter: 2013Q2

REPORT INFORMATION
  Report Type: Spontaneous
  Country: IT (occurrence: IT)
  Receive Date: 20130426
  Receipt Date: 20130426
  Transmission Date: 20140414
  Serious: Yes (Other)
  Sender: FDA-Public Use
  Company Number: IT-TEVA-399890ISR

PATIENT
  Age: 77 Year
  Sex: Male
  Weight: 60 kg

DRUGS (5)
  1. CARBOPLATINO TEVA [Suspect]
     Indication: LUNG ADENOCARCINOMA
     Dosage: 327,1 MG CYCLICAL
     Route: 042
     Dates: start: 20130109, end: 20130130
  2. GEMCITABINA ACCORD [Suspect]
     Indication: LUNG ADENOCARCINOMA
     Dosage: 1272 MG CYCLICAL
     Route: 042
     Dates: start: 20130109, end: 20130130
  3. ONDANSETRONE HIKMA [Concomitant]
     Indication: PROPHYLAXIS OF NAUSEA AND VOMITING
     Dosage: 8 MG
     Route: 042
     Dates: start: 20130109, end: 20130130
  4. SOLDESAM [Concomitant]
     Dosage: 8 MG
     Route: 042
     Dates: start: 20130109, end: 20130130
  5. RANIDIL [Concomitant]
     Dosage: 50 MG
     Route: 042
     Dates: start: 20130109, end: 20130130

REACTIONS (4)
  - Diarrhoea [Unknown]
  - Pyrexia [Unknown]
  - Dyspnoea [Unknown]
  - Asthenia [Unknown]
